FAERS Safety Report 23648675 (Version 5)
Quarter: 2024Q3

REPORT INFORMATION
  Report Type: Spontaneous
  Country: CA (occurrence: CA)
  Receive Date: 20240319
  Receipt Date: 20240722
  Transmission Date: 20241016
  Serious: Yes (Other)
  Sender: ORGANON
  Company Number: CA-MLMSERVICE-20230609-4338103-1

PATIENT
  Age: 42 Year
  Sex: Female

DRUGS (16)
  1. DIPROSONE [Suspect]
     Active Substance: BETAMETHASONE DIPROPIONATE
     Indication: Asthma
     Dosage: QD, TWELVE AND SEVEN 30 G TUBES
     Route: 061
  2. DIPROSONE [Suspect]
     Active Substance: BETAMETHASONE DIPROPIONATE
     Indication: Dermatitis atopic
     Dosage: UNK, QD (ON THE HANDS, WRISTS, FEET, AND ANKLES DAILY FOR 13 YEARS.TWELVE 30?G TUBES IN APPROXIMATEL
     Route: 061
     Dates: end: 202007
  3. DIPROSONE [Suspect]
     Active Substance: BETAMETHASONE DIPROPIONATE
     Indication: Rhinitis allergic
     Dosage: UNK
     Route: 065
  4. DESONIDE [Suspect]
     Active Substance: DESONIDE
     Indication: Dermatitis atopic
     Dosage: UNK, QD (ON THE HANDS, WRISTS, FEET, AND ANKLES DAILY FOR 13 YEARS.TWELVE 30?G TUBES IN APPROXIMATEL
     Route: 061
     Dates: end: 2020
  5. DEXAMETHASONE [Concomitant]
     Active Substance: DEXAMETHASONE
     Indication: Rhinitis allergic
     Dosage: UNK
     Route: 065
  6. DEXAMETHASONE [Concomitant]
     Active Substance: DEXAMETHASONE
     Indication: Asthma
  7. DEXAMETHASONE [Concomitant]
     Active Substance: DEXAMETHASONE
     Indication: Dermatitis atopic
  8. DEXAMETHASONE [Concomitant]
     Active Substance: DEXAMETHASONE
     Indication: Rhinitis allergic
     Dosage: UNK, NOT SPECIFIED
     Route: 065
  9. DEXAMETHASONE [Concomitant]
     Active Substance: DEXAMETHASONE
     Indication: Asthma
  10. DEXAMETHASONE [Concomitant]
     Active Substance: DEXAMETHASONE
     Indication: Dermatitis atopic
  11. FLUTICASONE [Concomitant]
     Active Substance: FLUTICASONE
     Indication: Rhinitis allergic
     Dosage: UNK
     Route: 065
  12. FLUTICASONE [Concomitant]
     Active Substance: FLUTICASONE
     Indication: Asthma
     Dosage: UNK
     Route: 065
  13. FLUTICASONE [Concomitant]
     Active Substance: FLUTICASONE
     Indication: Dermatitis atopic
  14. FLUTICASONE [Concomitant]
     Active Substance: FLUTICASONE
     Indication: Rhinitis allergic
     Dosage: UNK
     Route: 065
  15. FLUTICASONE [Concomitant]
     Active Substance: FLUTICASONE
     Indication: Asthma
  16. FLUTICASONE [Concomitant]
     Active Substance: FLUTICASONE
     Indication: Dermatitis atopic

REACTIONS (14)
  - Alopecia [Recovered/Resolved]
  - Angioedema [Recovered/Resolved]
  - Anhidrosis [Recovered/Resolved]
  - Emotional distress [Recovered/Resolved]
  - Erythema [Recovered/Resolved]
  - Fatigue [Recovered/Resolved]
  - Madarosis [Recovered/Resolved]
  - Neuralgia [Recovered/Resolved]
  - Paraesthesia [Recovered/Resolved]
  - Skin exfoliation [Recovered/Resolved]
  - Topical steroid withdrawal reaction [Recovered/Resolved]
  - Topical steroid withdrawal reaction [Recovered/Resolved]
  - Incorrect dose administered [Recovered/Resolved]
  - Incorrect product administration duration [Recovered/Resolved]

NARRATIVE: CASE EVENT DATE: 20200101
